FAERS Safety Report 9778297 (Version 1)
Quarter: 2013Q4

REPORT INFORMATION
  Report Type: Spontaneous
  Country: US (occurrence: US)
  Receive Date: 20131223
  Receipt Date: 20131223
  Transmission Date: 20140711
  Serious: No
  Sender: FDA-Public Use
  Company Number: US-009507513-1311USA012280

PATIENT
  Age: 26 Year
  Sex: Female
  Weight: 53.52 kg

DRUGS (1)
  1. NEXPLANON [Suspect]
     Indication: CONTRACEPTION
     Dosage: ONE ROD/THREE YEARS
     Route: 059
     Dates: start: 20131025

REACTIONS (4)
  - Epicondylitis [Unknown]
  - Mobility decreased [Unknown]
  - Pain in extremity [Unknown]
  - Implant site pain [Unknown]
